FAERS Safety Report 24130016 (Version 1)
Quarter: 2024Q3

REPORT INFORMATION
  Report Type: Spontaneous
  Country: US (occurrence: US)
  Receive Date: 20240724
  Receipt Date: 20240724
  Transmission Date: 20241017
  Serious: No
  Sender: LEO PHARM
  Company Number: US-LEO Pharma-372189

PATIENT
  Age: 78 Year
  Sex: Female

DRUGS (2)
  1. ADBRY [Suspect]
     Active Substance: TRALOKINUMAB-LDRM
     Indication: Dermatitis atopic
     Dosage: 4 INJECTIONS ON DAY 1 THEN START MAINTENANCE DOSING AS DIRECTED ON DAY 15; TREATMENT REPORTED AS ONG
     Route: 058
     Dates: start: 202407
  2. ADBRY [Suspect]
     Active Substance: TRALOKINUMAB-LDRM
     Indication: Dermatitis atopic
     Dosage: MAINTENANCE DOSING
     Route: 058

REACTIONS (6)
  - Fatigue [Unknown]
  - Dizziness [Unknown]
  - Arthralgia [Unknown]
  - Vitreous floaters [Unknown]
  - Respiration abnormal [Unknown]
  - Confusional state [Unknown]
